FAERS Safety Report 7530515-9 (Version None)
Quarter: 2011Q2

REPORT INFORMATION
  Report Type: 
  Country: None (occurrence: None)
  Receive Date: 20110607
  Receipt Date: 20110531
  Transmission Date: 20111010
  Serious: Yes (Hospitalization)
  Sender: FDA-Public Use
  Company Number: US-B.I. PHARMACEUTICALS,INC./RIDGEFIELD-2011-BP-06689BP

PATIENT
  Age: 92 Year
  Sex: Female
  Weight: 45.35 kg

DRUGS (14)
  1. POTASSIUM CHLORIDE [Concomitant]
     Indication: SUPPLEMENTATION THERAPY
     Dosage: 20 MEQ
     Route: 048
  2. DIGOXIN [Concomitant]
     Indication: CARDIAC DISORDER
     Route: 048
  3. LASIX [Concomitant]
     Indication: FLUID RETENTION
     Dosage: 20 MG
     Route: 048
  4. PRADAXA [Suspect]
     Indication: ANTICOAGULANT THERAPY
  5. FAMOTIDINE [Concomitant]
     Indication: GASTROOESOPHAGEAL REFLUX DISEASE
     Dosage: 40 MG
     Route: 048
  6. TYLENOL (CAPLET) [Concomitant]
  7. PRADAXA [Suspect]
     Indication: ATRIAL FIBRILLATION
     Dosage: 300 MG
     Route: 048
     Dates: start: 20110201, end: 20110228
  8. FERROUS SULFATE TAB [Concomitant]
     Indication: SUPPLEMENTATION THERAPY
     Dosage: 325 MG
     Route: 048
  9. ALLEGRA [Concomitant]
     Dosage: 180 MG
     Route: 048
  10. CARVEDILOL [Concomitant]
     Indication: BLOOD PRESSURE
     Dosage: 12.25 MG
     Route: 048
  11. ASPIRIN [Concomitant]
     Dosage: 81 MG
     Route: 048
     Dates: end: 20110218
  12. FEXOFENADINE HCL [Concomitant]
     Dosage: 180 MG
  13. VITAMIN B-12 [Concomitant]
  14. KDUR [Concomitant]
     Dosage: 10 MG
     Route: 048

REACTIONS (2)
  - HAEMATOCHEZIA [None]
  - ANAEMIA [None]
